FAERS Safety Report 4294097-X (Version None)
Quarter: 2004Q1

REPORT INFORMATION
  Report Type: 
  Country: None (occurrence: None)
  Receive Date: 20040212
  Receipt Date: 20040212
  Transmission Date: 20041129
  Serious: Yes (Other)
  Sender: FDA-Public Use
  Company Number: None

PATIENT
  Sex: Female
  Weight: 61.2356 kg

DRUGS (1)
  1. ZICAM ZINCUM GLUCONICUM 2X  ZICAM/MATRIX, INC. [Suspect]
     Indication: NASOPHARYNGITIS
     Dosage: ONE SWAB 1 PER DAY NASAL
     Route: 045

REACTIONS (2)
  - ANOSMIA [None]
  - SINUS DISORDER [None]
